FAERS Safety Report 25614599 (Version 1)
Quarter: 2025Q3

REPORT INFORMATION
  Report Type: Spontaneous
  Country: US (occurrence: US)
  Receive Date: 20250729
  Receipt Date: 20250729
  Transmission Date: 20251020
  Serious: Yes (Other)
  Sender: PIRAMAL
  Company Number: US-PIRAMAL CRITICAL CARE LIMITED-2025-PPL-000442

PATIENT

DRUGS (5)
  1. GABLOFEN [Suspect]
     Active Substance: BACLOFEN
     Indication: Muscle spasticity
     Dosage: 400 MICROGRAM, QD
     Route: 037
  2. GABLOFEN [Suspect]
     Active Substance: BACLOFEN
     Dosage: 100 MICROGRAM, QD
     Route: 037
  3. GABLOFEN [Suspect]
     Active Substance: BACLOFEN
     Dosage: 75 MICROGRAM, QD
     Route: 037
  4. GABLOFEN [Suspect]
     Active Substance: BACLOFEN
     Dosage: 50 MICROGRAM, QD
     Route: 037
  5. GABLOFEN [Suspect]
     Active Substance: BACLOFEN
     Dosage: 25 MICROGRAM, QD
     Route: 037

REACTIONS (3)
  - Cognitive disorder [Recovered/Resolved]
  - Overdose [Recovered/Resolved]
  - Lethargy [Recovered/Resolved]
